FAERS Safety Report 8306697-8 (Version None)
Quarter: 2012Q1

REPORT INFORMATION
  Report Type: 
  Country: None (occurrence: None)
  Receive Date: 20120327
  Receipt Date: 20100513
  Transmission Date: 20120608
  Serious: Yes (Hospitalization)
  Sender: FDA-Public Use
  Company Number: PHHY2010US29131

PATIENT
  Age: 81 Year
  Sex: Female

DRUGS (2)
  1. GLEEVEC [Suspect]
     Indication: CHRONIC MYELOID LEUKAEMIA
     Dosage: 400 MG, ORAL 200 MG, DAILY, ORAL
     Route: 048
     Dates: start: 20100505
  2. GLEEVEC [Suspect]
     Indication: CHRONIC MYELOID LEUKAEMIA
     Dosage: 400 MG, ORAL 200 MG, DAILY, ORAL
     Route: 048
     Dates: start: 20100310, end: 20100421

REACTIONS (2)
  - HAEMOGLOBIN DECREASED [None]
  - SWELLING [None]
